FAERS Safety Report 21192821 (Version 2)
Quarter: 2022Q3

REPORT INFORMATION
  Report Type: Report from Study
  Country: US (occurrence: US)
  Receive Date: 20220810
  Receipt Date: 20220811
  Transmission Date: 20221026
  Serious: Yes (Death)
  Sender: FDA-Public Use
  Company Number: US-ABBVIE-22K-163-4499104-00

PATIENT
  Age: 79 Year
  Sex: Male

DRUGS (1)
  1. SYNTHROID [Suspect]
     Active Substance: LEVOTHYROXINE SODIUM
     Indication: Hypothyroidism
     Route: 048
     Dates: start: 202203, end: 2022

REACTIONS (2)
  - Death [Fatal]
  - Progressive supranuclear palsy [Unknown]

NARRATIVE: CASE EVENT DATE: 20220721
